FAERS Safety Report 6827683-0 (Version None)
Quarter: 2010Q3

REPORT INFORMATION
  Report Type: 
  Country: None (occurrence: None)
  Receive Date: 20100709
  Receipt Date: 20070123
  Transmission Date: 20110219
  Serious: No
  Sender: FDA-Public Use
  Company Number: US-PFIZER INC-2007006355

PATIENT
  Sex: Male
  Weight: 113.4 kg

DRUGS (6)
  1. CHANTIX [Suspect]
     Indication: SMOKING CESSATION THERAPY
     Dates: start: 20070123
  2. ADVAIR DISKUS 100/50 [Concomitant]
  3. ALBUTEROL [Concomitant]
  4. PERCOCET [Concomitant]
  5. METOPROLOL [Concomitant]
  6. ASPIRIN [Concomitant]

REACTIONS (1)
  - NAUSEA [None]
